FAERS Safety Report 6547669-3 (Version None)
Quarter: 2010Q1

REPORT INFORMATION
  Report Type: 
  Country: None (occurrence: None)
  Receive Date: 20100123
  Receipt Date: 20100114
  Transmission Date: 20100710
  Serious: Yes (Other)
  Sender: FDA-Public Use
  Company Number: US-JNJFOC-20100107393

PATIENT
  Sex: Female
  Weight: 72.58 kg

DRUGS (10)
  1. FENTANYL [Suspect]
     Indication: PAIN
     Route: 062
  2. FENTANYL [Suspect]
     Route: 062
  3. FENTANYL [Suspect]
     Indication: PAIN
     Route: 062
  4. FENTANYL [Suspect]
     Route: 062
  5. FOSAMAX [Concomitant]
     Indication: OSTEOPOROSIS
     Route: 048
  6. FORTICAL [Concomitant]
     Indication: OSTEOPOROSIS
     Route: 065
  7. AZATHIOPRINE [Concomitant]
     Route: 065
  8. IMURAN [Concomitant]
     Indication: SYSTEMIC LUPUS ERYTHEMATOSUS
     Route: 065
  9. PLAQUENIL [Concomitant]
     Route: 065
  10. CALCIUM [Concomitant]
     Route: 065

REACTIONS (3)
  - CERVICAL VERTEBRAL FRACTURE [None]
  - DRUG INEFFECTIVE [None]
  - PAIN [None]
